FAERS Safety Report 18235262 (Version 2)
Quarter: 2020Q3

REPORT INFORMATION
  Report Type: Spontaneous
  Country: US (occurrence: US)
  Receive Date: 20200904
  Receipt Date: 20200908
  Transmission Date: 20201103
  Serious: Yes (Hospitalization, Other)
  Sender: FDA-Public Use
  Company Number: US-AUROBINDO-AUR-APL-2020-045613

PATIENT
  Age: 58 Year
  Sex: Male
  Weight: 83 kg

DRUGS (3)
  1. CIPROFLOXACIN TABLETS USP 500 MG [Suspect]
     Active Substance: CIPROFLOXACIN
     Indication: PRODUCT USED FOR UNKNOWN INDICATION
     Dosage: UNK
     Route: 065
  2. DEXILANT [Interacting]
     Active Substance: DEXLANSOPRAZOLE
     Indication: GASTROOESOPHAGEAL REFLUX DISEASE
     Dosage: UNK UNK, ONCE A DAY EVERY MORNING
     Route: 065
  3. LEVOFLOXACIN. [Suspect]
     Active Substance: LEVOFLOXACIN
     Indication: PROSTATITIS
     Dosage: UNK
     Route: 065

REACTIONS (29)
  - Pruritus [Unknown]
  - Neck pain [Unknown]
  - Vertigo [Unknown]
  - Dyspnoea [Unknown]
  - Tremor [Unknown]
  - Heart rate irregular [Unknown]
  - Pain [Recovering/Resolving]
  - Swelling face [Recovered/Resolved]
  - Drug hypersensitivity [Unknown]
  - Pain in extremity [Not Recovered/Not Resolved]
  - Drug interaction [Unknown]
  - Nasopharyngitis [Unknown]
  - Hypertension [Unknown]
  - Musculoskeletal chest pain [Recovering/Resolving]
  - Dysstasia [Unknown]
  - Rash [Unknown]
  - Dehydration [Unknown]
  - Influenza like illness [Unknown]
  - Hypoacusis [Recovered/Resolved]
  - Lacrimation increased [Unknown]
  - Feeling abnormal [Unknown]
  - Nausea [Unknown]
  - Back pain [Recovering/Resolving]
  - Hypoaesthesia [Unknown]
  - Arthralgia [Not Recovered/Not Resolved]
  - Visual impairment [Recovered/Resolved]
  - Tendon pain [Recovered/Resolved]
  - Ear pain [Unknown]
  - Pain in jaw [Unknown]
